FAERS Safety Report 18514194 (Version 1)
Quarter: 2020Q4

REPORT INFORMATION
  Report Type: Spontaneous
  Country: US (occurrence: US)
  Receive Date: 20201118
  Receipt Date: 20201118
  Transmission Date: 20210114
  Serious: No
  Sender: FDA-Public Use
  Company Number: US-ELI_LILLY_AND_COMPANY-US202010010533

PATIENT
  Sex: Male

DRUGS (4)
  1. HUMALOG KWIKPEN [Suspect]
     Active Substance: INSULIN LISPRO
     Dosage: 4 U, TID
     Route: 058
     Dates: start: 202004
  2. HUMALOG KWIKPEN [Suspect]
     Active Substance: INSULIN LISPRO
     Dosage: 4 U, TID
     Route: 058
     Dates: start: 202004
  3. HUMALOG KWIKPEN [Suspect]
     Active Substance: INSULIN LISPRO
     Indication: TYPE 2 DIABETES MELLITUS
     Dosage: 4 U, TID
     Route: 058
     Dates: start: 202004
  4. HUMALOG KWIKPEN [Suspect]
     Active Substance: INSULIN LISPRO
     Indication: TYPE 2 DIABETES MELLITUS
     Dosage: 4 U, TID
     Route: 058
     Dates: start: 202004

REACTIONS (2)
  - Blood glucose decreased [Unknown]
  - Incorrect dose administered [Unknown]
